FAERS Safety Report 20684026 (Version 1)
Quarter: 2022Q2

REPORT INFORMATION
  Report Type: Spontaneous
  Country: US (occurrence: None)
  Receive Date: 20220405
  Receipt Date: 20220405
  Transmission Date: 20220721
  Serious: Yes (Hospitalization)
  Sender: FDA-Public Use
  Company Number: None

PATIENT
  Age: 70 Year
  Sex: Male
  Weight: 96.16 kg

DRUGS (7)
  1. ABIRATERONE [Suspect]
     Active Substance: ABIRATERONE
     Indication: Prostate cancer
     Dosage: FREQUENCY : DAILY;?
     Route: 048
     Dates: start: 20210707
  2. AMLODIPINE [Concomitant]
     Active Substance: AMLODIPINE BESYLATE
  3. ATIVAN [Concomitant]
     Active Substance: LORAZEPAM
  4. BICALUTAMIDE [Concomitant]
     Active Substance: BICALUTAMIDE
  5. CARVEDILOL [Concomitant]
     Active Substance: CARVEDILOL
  6. MIDODRINE [Concomitant]
     Active Substance: MIDODRINE
  7. PREDNISONE [Concomitant]
     Active Substance: PREDNISONE

REACTIONS (1)
  - Renal disorder [None]
